FAERS Safety Report 9197121 (Version 1)
Quarter: 2013Q1

REPORT INFORMATION
  Report Type: Spontaneous
  Country: US (occurrence: US)
  Receive Date: 20130328
  Receipt Date: 20130328
  Transmission Date: 20140127
  Serious: Yes (Other)
  Sender: FDA-Public Use
  Company Number: US-JNJCP-30000152717

PATIENT
  Sex: Male

DRUGS (1)
  1. JOHNSON^S BABY PRODUCTS [Suspect]
     Route: 055

REACTIONS (2)
  - Accidental exposure to product [Unknown]
  - Laryngeal cancer [Unknown]
